FAERS Safety Report 25974777 (Version 1)
Quarter: 2025Q4

REPORT INFORMATION
  Report Type: Spontaneous
  Country: US (occurrence: US)
  Receive Date: 20251029
  Receipt Date: 20251029
  Transmission Date: 20260118
  Serious: Yes (Hospitalization)
  Sender: IMPRIMIS NJOF, LLC
  Company Number: US-Imprimis NJOF, LLC-2187466

PATIENT
  Sex: Female

DRUGS (1)
  1. BROMFENAC\MOXIFLOXACIN\PREDNISONE [Suspect]
     Active Substance: BROMFENAC\MOXIFLOXACIN\PREDNISONE

REACTIONS (3)
  - Dizziness [Recovered/Resolved]
  - Hypertension [Recovered/Resolved]
  - Nausea [Recovered/Resolved]
